FAERS Safety Report 6397508-9 (Version None)
Quarter: 2009Q4

REPORT INFORMATION
  Report Type: 
  Country: None (occurrence: None)
  Receive Date: 20091001
  Receipt Date: 20090918
  Transmission Date: 20100525
  Serious: Yes (Other)
  Sender: FDA-Public Use
  Company Number: 2009020740

PATIENT
  Sex: Female
  Weight: 70 kg

DRUGS (1)
  1. VIVAGLOBIN [Suspect]
     Indication: IMMUNODEFICIENCY COMMON VARIABLE
     Dosage: 14.4 GRAMS PER WEEK (88 ML) (SUBCUTANEOUS)
     Route: 058
     Dates: start: 20060101

REACTIONS (5)
  - ANTI-THYROID ANTIBODY POSITIVE [None]
  - OEDEMA PERIPHERAL [None]
  - POLYARTHRITIS [None]
  - THYROXIN BINDING GLOBULIN INCREASED [None]
  - URTICARIA [None]
